FAERS Safety Report 5190927-8 (Version None)
Quarter: 2006Q4

REPORT INFORMATION
  Report Type: 
  Country: None (occurrence: None)
  Receive Date: 20061222
  Receipt Date: 20061213
  Transmission Date: 20070319
  Serious: Yes (Hospitalization)
  Sender: FDA-Public Use
  Company Number: FR-BRISTOL-MYERS SQUIBB COMPANY-13612759

PATIENT
  Age: 44 Year
  Sex: Female

DRUGS (7)
  1. VIDEX [Suspect]
     Dates: start: 20050726
  2. SULFADIAZINE [Suspect]
     Dates: start: 20050624, end: 20060909
  3. EPIVIR [Suspect]
     Dates: start: 20050726
  4. KALETRA [Suspect]
     Dates: start: 20050726
  5. DEPAKENE [Suspect]
  6. PYRIMETHAMINE TAB [Suspect]
     Dates: start: 20050624, end: 20060909
  7. NORVIR [Concomitant]
     Dates: start: 20050726

REACTIONS (5)
  - ANAEMIA [None]
  - CONVULSION [None]
  - LEUKOPENIA [None]
  - NEUTROPENIA [None]
  - THROMBOCYTOPENIA [None]
